FAERS Safety Report 19451577 (Version 1)
Quarter: 2021Q2

REPORT INFORMATION
  Report Type: Spontaneous
  Country: CA (occurrence: CA)
  Receive Date: 20210623
  Receipt Date: 20210623
  Transmission Date: 20210717
  Serious: Yes (Hospitalization, Other)
  Sender: FDA-Public Use
  Company Number: CA-OXFORD PHARMACEUTICALS, LLC-2113002

PATIENT
  Sex: Male

DRUGS (6)
  1. BENZTROPINE MESYLATE. [Suspect]
     Active Substance: BENZTROPINE MESYLATE
     Indication: PRODUCT USED FOR UNKNOWN INDICATION
  2. PAROXETINE HYDROCHLORIDE. [Suspect]
     Active Substance: PAROXETINE HYDROCHLORIDE
  3. ASENAPINE. [Suspect]
     Active Substance: ASENAPINE
  4. GABAPENTIN. [Concomitant]
     Active Substance: GABAPENTIN
  5. DIVALPROEX SODIUM. [Concomitant]
     Active Substance: DIVALPROEX SODIUM
  6. MEDROXYPROGESTERONE ACETATE. [Concomitant]
     Active Substance: MEDROXYPROGESTERONE ACETATE

REACTIONS (11)
  - Aphasia [Recovered/Resolved]
  - Cogwheel rigidity [Unknown]
  - Nystagmus [Recovered/Resolved]
  - Hallucination, visual [Recovered/Resolved]
  - Head titubation [Unknown]
  - Resting tremor [Not Recovered/Not Resolved]
  - Delirium [Recovering/Resolving]
  - Toxicity to various agents [Recovering/Resolving]
  - Dry mouth [Unknown]
  - Clonus [Not Recovered/Not Resolved]
  - Serotonin syndrome [Unknown]
